FAERS Safety Report 6903045-2 (Version None)
Quarter: 2010Q3

REPORT INFORMATION
  Report Type: 
  Country: None (occurrence: None)
  Receive Date: 20100803
  Receipt Date: 20080909
  Transmission Date: 20110219
  Serious: No
  Sender: FDA-Public Use
  Company Number: US-PFIZER INC-2008075288

PATIENT
  Sex: Female
  Weight: 51.71 kg

DRUGS (3)
  1. LYRICA [Suspect]
     Indication: PAIN PROPHYLAXIS
     Route: 048
     Dates: start: 20080908
  2. WELCHOL [Concomitant]
  3. VALTREX [Concomitant]

REACTIONS (4)
  - DISORIENTATION [None]
  - DIZZINESS [None]
  - GAIT DISTURBANCE [None]
  - SPEECH DISORDER [None]
